FAERS Safety Report 9173690 (Version 1)
Quarter: 2013Q1

REPORT INFORMATION
  Report Type: Spontaneous
  Country: US (occurrence: None)
  Receive Date: 20130314
  Receipt Date: 20130314
  Transmission Date: 20140127
  Serious: Yes (Hospitalization, Other)
  Sender: FDA-Public Use
  Company Number: 2013P1002946

PATIENT
  Age: 70 Year
  Sex: Male

DRUGS (1)
  1. INFUMORPH [Suspect]
     Indication: PAIN

REACTIONS (8)
  - Back pain [None]
  - Somnolence [None]
  - Asthenia [None]
  - Fall [None]
  - Faecal incontinence [None]
  - Mental status changes [None]
  - Urinary retention [None]
  - Inflammation [None]
